FAERS Safety Report 20923115 (Version 1)
Quarter: 2022Q2

REPORT INFORMATION
  Report Type: Report from Study
  Country: GB (occurrence: GB)
  Receive Date: 20220607
  Receipt Date: 20220607
  Transmission Date: 20220721
  Serious: Yes (Other)
  Sender: FDA-Public Use
  Company Number: GB-NOVARTISPH-NVSC2022GB125836

PATIENT
  Sex: Male

DRUGS (2)
  1. HYRIMOZ [Suspect]
     Active Substance: ADALIMUMAB-ADAZ
     Indication: Crohn^s disease
     Dosage: 160 MG, WEEK 0
     Route: 058
     Dates: start: 20220530
  2. HYRIMOZ [Suspect]
     Active Substance: ADALIMUMAB-ADAZ
     Dosage: 80 MG, WEEK 2
     Route: 058

REACTIONS (9)
  - Generalised tonic-clonic seizure [Recovering/Resolving]
  - Heart rate decreased [Recovering/Resolving]
  - Muscle rigidity [Recovering/Resolving]
  - Unresponsive to stimuli [Recovering/Resolving]
  - Asthenia [Recovering/Resolving]
  - Body temperature increased [Recovering/Resolving]
  - Blood pressure decreased [Recovering/Resolving]
  - Respiratory rate increased [Recovering/Resolving]
  - Headache [Recovering/Resolving]
